FAERS Safety Report 14641924 (Version 2)
Quarter: 2019Q4

REPORT INFORMATION
  Report Type: Spontaneous
  Country: FR (occurrence: FR)
  Receive Date: 20180315
  Receipt Date: 20191223
  Transmission Date: 20200122
  Serious: Yes (Hospitalization, Other)
  Sender: FDA-Public Use
  Company Number: FR-SA-2018SA065418

PATIENT
  Age: 42 Year
  Sex: Male
  Weight: 92 kg

DRUGS (15)
  1. ZOPICLONE [Suspect]
     Active Substance: ZOPICLONE
     Dosage: UNK UNK,UNK
     Route: 065
     Dates: start: 20170608, end: 20170608
  2. TRANXENE [Suspect]
     Active Substance: CLORAZEPATE DIPOTASSIUM
     Dosage: UNK UNK,UNK
     Route: 048
  3. LOXAPAC [LOXAPINE SUCCINATE] [Suspect]
     Active Substance: LOXAPINE SUCCINATE
     Indication: SCHIZOPHRENIA
     Dosage: UNK UNK,UNK
     Route: 048
  4. OXAZEPAM. [Suspect]
     Active Substance: OXAZEPAM
     Dosage: UNK UNK,UNK
     Route: 048
  5. ACETYLSALICYLIC ACID [Suspect]
     Active Substance: ASPIRIN
     Dosage: UNK UNK,UNK
     Route: 048
  6. ARIPIPRAZOLE. [Suspect]
     Active Substance: ARIPIPRAZOLE
     Indication: SCHIZOPHRENIA
     Dosage: UNK UNK,UNK
     Route: 048
  7. VENLAFAXINE HYDROCHLORIDE. [Suspect]
     Active Substance: VENLAFAXINE HYDROCHLORIDE
     Indication: DEPRESSION
     Dosage: UNK UNK,UNK
     Route: 048
  8. CISATRACURIUM MYLAN [Suspect]
     Active Substance: CISATRACURIUM
     Dosage: UNK UNK,UNK
     Route: 042
     Dates: start: 20170608, end: 20170610
  9. ALPRAZOLAM. [Suspect]
     Active Substance: ALPRAZOLAM
     Dosage: UNK UNK,UNK
     Route: 048
     Dates: start: 20170608, end: 20170608
  10. AMOXICILLIN/CLAVULANIC ACID [Suspect]
     Active Substance: AMOXICILLIN\CLAVULANIC ACID
     Indication: PNEUMONIA
     Dosage: UNK UNK,UNK
     Route: 042
     Dates: start: 20170608, end: 20170615
  11. THERALENE [Suspect]
     Active Substance: TRIMEPRAZINE
     Dosage: UNK UNK,UNK
     Route: 048
  12. LOVENOX [Suspect]
     Active Substance: ENOXAPARIN SODIUM
     Indication: VENOUS THROMBOSIS
     Dosage: 2 DF,QD
     Route: 058
     Dates: start: 20170608, end: 20170615
  13. ARAVA [Suspect]
     Active Substance: LEFLUNOMIDE
     Indication: PALINDROMIC RHEUMATISM
     Dosage: UNK UNK,UNK
     Route: 048
  14. PROMETHAZINE [Suspect]
     Active Substance: PROMETHAZINE HYDROCHLORIDE
     Dosage: UNK UNK,UNK
     Route: 048
     Dates: start: 20170608, end: 20170608
  15. TRIHEXYPHENIDYL HYDROCHLORIDE. [Suspect]
     Active Substance: TRIHEXYPHENIDYL HYDROCHLORIDE
     Dosage: UNK UNK,UNK
     Route: 065

REACTIONS (4)
  - Blood triglycerides increased [Recovering/Resolving]
  - Hepatitis acute [Recovered/Resolved]
  - Blood cholesterol increased [Recovered/Resolved]
  - Lipase increased [Recovered/Resolved]

NARRATIVE: CASE EVENT DATE: 20170616
